FAERS Safety Report 6021100-9 (Version None)
Quarter: 2008Q4

REPORT INFORMATION
  Report Type: 
  Country: None (occurrence: None)
  Receive Date: 20081229
  Receipt Date: 20081218
  Transmission Date: 20090506
  Serious: Yes (Other)
  Sender: FDA-Public Use
  Company Number: JP-PFIZER INC-2008158621

PATIENT

DRUGS (4)
  1. NORVASC [Suspect]
     Indication: HYPERTENSION
     Dosage: 5 MG, 1X/DAY
     Route: 048
     Dates: start: 20081122, end: 20081210
  2. NU LOTAN [Concomitant]
  3. ASPIRIN [Concomitant]
  4. ALLOZYM [Concomitant]

REACTIONS (2)
  - BLOOD BILIRUBIN INCREASED [None]
  - PLATELET COUNT DECREASED [None]
